FAERS Safety Report 6159083-3 (Version None)
Quarter: 2009Q2

REPORT INFORMATION
  Report Type: 
  Country: None (occurrence: None)
  Receive Date: 20090417
  Receipt Date: 20090409
  Transmission Date: 20091009
  Serious: Yes (Hospitalization, Other)
  Sender: FDA-Public Use
  Company Number: PHHY2009BR13550

PATIENT
  Sex: Female
  Weight: 63 kg

DRUGS (3)
  1. EXFORGE [Suspect]
     Indication: BLOOD PRESSURE
     Dosage: 1 TABLET DAILY
     Route: 048
     Dates: start: 19980101
  2. EXFORGE [Suspect]
     Dosage: 2 TABLET DAILY (MORNING AND NIGHT)
     Route: 048
     Dates: start: 20090320
  3. CEPHALEXIN [Suspect]
     Indication: INGROWING NAIL
     Dosage: 500 MG

REACTIONS (6)
  - BLOOD PRESSURE INADEQUATELY CONTROLLED [None]
  - HYPERTENSION [None]
  - INGROWING NAIL [None]
  - NAIL BED INFLAMMATION [None]
  - NAIL OPERATION [None]
  - TACHYCARDIA [None]
